FAERS Safety Report 6693588-1 (Version None)
Quarter: 2010Q2

REPORT INFORMATION
  Report Type: 
  Country: None (occurrence: None)
  Receive Date: 20100423
  Receipt Date: 20100301
  Transmission Date: 20101027
  Serious: No
  Sender: FDA-Public Use
  Company Number: 2008BI014029

PATIENT
  Age: 56 Year
  Sex: Female
  Weight: 72 kg

DRUGS (11)
  1. TYSABRI [Suspect]
     Indication: MULTIPLE SCLEROSIS
     Route: 042
     Dates: start: 20080104, end: 20091001
  2. TYSABRI [Suspect]
     Route: 042
     Dates: start: 20100101
  3. LISINOPRIL [Concomitant]
     Indication: HYPERTENSION
  4. HYDROCHLORATHIAZIDE [Concomitant]
     Indication: HYPERTENSION
  5. PAXIL [Concomitant]
  6. XANAX [Concomitant]
  7. BENTYL [Concomitant]
     Indication: IRRITABLE BOWEL SYNDROME
  8. CARAFATE [Concomitant]
  9. NEXIUM [Concomitant]
     Indication: GASTROOESOPHAGEAL REFLUX DISEASE
  10. BACLOFEN [Concomitant]
  11. DITROPAN [Concomitant]
     Indication: URINARY INCONTINENCE

REACTIONS (10)
  - AMNESIA [None]
  - CONFUSIONAL STATE [None]
  - DIZZINESS [None]
  - FATIGUE [None]
  - LOSS OF CONSCIOUSNESS [None]
  - MIGRAINE [None]
  - MUSCULAR WEAKNESS [None]
  - ORTHOSTATIC HYPOTENSION [None]
  - SYNCOPE [None]
  - TREMOR [None]
